APPROVED DRUG PRODUCT: KADIAN
Active Ingredient: MORPHINE SULFATE
Strength: 10MG
Dosage Form/Route: CAPSULE, EXTENDED RELEASE;ORAL
Application: N020616 | Product #008
Applicant: ALLERGAN SALES LLC
Approved: Apr 20, 2007 | RLD: Yes | RS: No | Type: DISCN